FAERS Safety Report 12398411 (Version 7)
Quarter: 2019Q4

REPORT INFORMATION
  Report Type: Spontaneous
  Country: NL (occurrence: NL)
  Receive Date: 20160524
  Receipt Date: 20191128
  Transmission Date: 20200122
  Serious: Yes (Other)
  Sender: FDA-Public Use
  Company Number: NL-PFIZER INC-2015280390

PATIENT
  Age: 59 Year
  Sex: Female

DRUGS (9)
  1. SOMAVERT [Suspect]
     Active Substance: PEGVISOMANT
     Dosage: 80 MG, 2X/WEEK
     Dates: start: 20120725
  2. SOMAVERT [Suspect]
     Active Substance: PEGVISOMANT
     Dosage: CYCLIC (50 MG 1X/WEEK AND 40 MG 1X/WEEK)
     Route: 058
     Dates: start: 20150826
  3. SOMAVERT [Suspect]
     Active Substance: PEGVISOMANT
     Dosage: 60 MG, 3X PER WEEK
     Route: 058
     Dates: start: 20160517
  4. SOMAVERT [Suspect]
     Active Substance: PEGVISOMANT
     Dosage: 60 MG, 3X/WEEK
  5. OCTREOTIDE. [Concomitant]
     Active Substance: OCTREOTIDE
  6. SOMAVERT [Suspect]
     Active Substance: PEGVISOMANT
     Dosage: 80 MG, 3X/WEEK
  7. SOMAVERT [Suspect]
     Active Substance: PEGVISOMANT
     Dosage: 60 MG, CYCLIC (3X/WEEKLY)
     Dates: start: 20141222
  8. COVERSYL PLUS ARG [Concomitant]
     Dosage: 10/2.5 MG
  9. SOMAVERT [Suspect]
     Active Substance: PEGVISOMANT
     Indication: ACROMEGALY
     Dosage: UNK
     Route: 058
     Dates: start: 20091020

REACTIONS (4)
  - Product prescribing error [Unknown]
  - Headache [Not Recovered/Not Resolved]
  - Diabetes mellitus [Unknown]
  - Off label use [Unknown]

NARRATIVE: CASE EVENT DATE: 20091020
